FAERS Safety Report 5317253-8 (Version None)
Quarter: 2007Q2

REPORT INFORMATION
  Report Type: 
  Country: None (occurrence: None)
  Receive Date: 20070504
  Receipt Date: 20070427
  Transmission Date: 20071010
  Serious: Yes (Other)
  Sender: FDA-Public Use
  Company Number: MX-ROXANE LABORATORIES, INC-2007-BP-05823RO

PATIENT
  Age: 26 Year
  Sex: Male

DRUGS (5)
  1. AZATHIOPRINE [Suspect]
     Indication: IMMUNOSUPPRESSION
     Dosage: 150 MG TO 50 MG DAILY
     Route: 048
     Dates: start: 19760101, end: 20030101
  2. CYCLOPHOSPHAMIDE TABLETS USP, 50 MG [Suspect]
     Indication: IMMUNOSUPPRESSION
     Dosage: 200 MG/DAY
     Route: 048
     Dates: start: 19760101
  3. PREDNISONE TAB [Suspect]
     Indication: IMMUNOSUPPRESSION
     Dosage: 90 MG TO 5 MG DAILY
     Route: 048
     Dates: start: 19760101
  4. METHYLPREDNISOLONE 16MG TAB [Suspect]
     Indication: IMMUNOSUPPRESSION
     Dosage: 375 MG/DAY
     Route: 048
     Dates: start: 19760101
  5. PRAVASTATIN [Suspect]
     Indication: HYPERCHOLESTEROLAEMIA
     Dosage: 10 MG/DAY
     Route: 048
     Dates: start: 19990301, end: 20000101

REACTIONS (4)
  - ALANINE AMINOTRANSFERASE INCREASED [None]
  - HEPATITIS C [None]
  - HEPATOTOXICITY [None]
  - HYPERCHOLESTEROLAEMIA [None]
